FAERS Safety Report 13813756 (Version 3)
Quarter: 2017Q3

REPORT INFORMATION
  Report Type: Spontaneous
  Country: US (occurrence: US)
  Receive Date: 20170731
  Receipt Date: 20170929
  Transmission Date: 20171127
  Serious: No
  Sender: FDA-Public Use
  Company Number: US-PFIZER INC-2017322989

PATIENT
  Age: 80 Year
  Sex: Female

DRUGS (1)
  1. XELJANZ [Suspect]
     Active Substance: TOFACITINIB CITRATE
     Indication: RHEUMATOID ARTHRITIS
     Dosage: 5 MG, UNK

REACTIONS (7)
  - Musculoskeletal stiffness [Unknown]
  - Pain in extremity [Unknown]
  - Fall [Unknown]
  - Nodule [Unknown]
  - Pain in extremity [Unknown]
  - Arthralgia [Unknown]
  - Skin lesion [Unknown]

NARRATIVE: CASE EVENT DATE: 201704
